FAERS Safety Report 26105083 (Version 1)
Quarter: 2025Q4

REPORT INFORMATION
  Report Type: Report from Study
  Country: EU (occurrence: EU)
  Receive Date: 20251130
  Receipt Date: 20251130
  Transmission Date: 20260117
  Serious: Yes (Death, Life-Threatening, Hospitalization, Other)
  Sender: ABBVIE
  Company Number: EU-ABBVIE-6570159

PATIENT
  Age: 68 Year
  Sex: Female

DRUGS (15)
  1. VENETOCLAX [Suspect]
     Active Substance: VENETOCLAX
     Indication: Acute myeloid leukaemia
     Dosage: RAMP- UP DOSE
     Route: 048
     Dates: start: 20240826, end: 20240826
  2. VENETOCLAX [Suspect]
     Active Substance: VENETOCLAX
     Indication: Acute myeloid leukaemia
     Dosage: RAMP- UP DOSE
     Route: 048
     Dates: start: 20240827, end: 20240827
  3. VENETOCLAX [Suspect]
     Active Substance: VENETOCLAX
     Indication: Acute myeloid leukaemia
     Dosage: END OF CYCLE(28 DAYS)
     Route: 048
     Dates: start: 20240828, end: 20240922
  4. VENETOCLAX [Suspect]
     Active Substance: VENETOCLAX
     Indication: Acute myeloid leukaemia
     Dosage: DOSE INTERRUPTED
     Route: 048
     Dates: start: 20240924, end: 20241002
  5. VENETOCLAX [Suspect]
     Active Substance: VENETOCLAX
     Indication: Acute myeloid leukaemia
     Dosage: END OF CYCLE(28 DAYS)?DOSE-0 MG
     Route: 048
     Dates: start: 20241003, end: 20241021
  6. VENETOCLAX [Suspect]
     Active Substance: VENETOCLAX
     Indication: Acute myeloid leukaemia
     Dosage: END OF CYCLE(28 DAYS)
     Route: 048
     Dates: start: 20241029, end: 20241125
  7. VENETOCLAX [Suspect]
     Active Substance: VENETOCLAX
     Indication: Acute myeloid leukaemia
     Dosage: END OF CYCLE(28 DAYS)
     Route: 048
     Dates: start: 20241210, end: 20250103
  8. AZACITIDINE [Suspect]
     Active Substance: AZACITIDINE
     Indication: Acute myeloid leukaemia
     Dosage: DOSE- 75 MG/M2 BSA?END OF CYCLE(7 DAYS)
     Route: 065
     Dates: start: 20240826, end: 20240903
  9. AZACITIDINE [Suspect]
     Active Substance: AZACITIDINE
     Indication: Acute myeloid leukaemia
     Dosage: DOSE- 75 MG/M2 BSA?END OF CYCLE(7 DAYS)
     Route: 065
     Dates: start: 20240924, end: 20241002
  10. AZACITIDINE [Suspect]
     Active Substance: AZACITIDINE
     Indication: Acute myeloid leukaemia
     Dosage: DOSE- 75 MG/M2 BSA?END OF CYCLE(7 DAYS)
     Route: 065
     Dates: start: 20241029, end: 20241104
  11. AZACITIDINE [Suspect]
     Active Substance: AZACITIDINE
     Indication: Acute myeloid leukaemia
     Dosage: DOSE- 75 MG/M2 BSA?END OF CYCLE(7 DAYS)
     Route: 065
     Dates: start: 20241210, end: 20241217
  12. ALLOPURINOL [Concomitant]
     Active Substance: ALLOPURINOL
     Indication: Prophylaxis
     Route: 048
     Dates: start: 20240801, end: 20250117
  13. AMOXICILLIN\CLAVULANIC ACID [Concomitant]
     Active Substance: AMOXICILLIN\CLAVULANIC ACID
     Indication: Gingivitis
     Route: 045
     Dates: start: 20241002, end: 20241008
  14. Cefixima EG [Concomitant]
     Indication: Gingivitis
     Route: 048
     Dates: start: 20241008, end: 20241022
  15. FIDAXOMICIN [Concomitant]
     Active Substance: FIDAXOMICIN
     Indication: Clostridium difficile infection
     Route: 048
     Dates: start: 20250103, end: 20250119

REACTIONS (1)
  - Septic shock [Fatal]

NARRATIVE: CASE EVENT DATE: 20250525
